FAERS Safety Report 7961215-9 (Version None)
Quarter: 2011Q4

REPORT INFORMATION
  Report Type: 
  Country: None (occurrence: None)
  Receive Date: 20111207
  Receipt Date: 20111125
  Transmission Date: 20120403
  Serious: Yes (Hospitalization)
  Sender: FDA-Public Use
  Company Number: FR-BRISTOL-MYERS SQUIBB COMPANY-16257081

PATIENT
  Age: 82 Year
  Sex: Male

DRUGS (22)
  1. CEFEPIME [Suspect]
     Route: 042
     Dates: start: 20110501, end: 20110614
  2. NEXIUM [Concomitant]
     Route: 048
     Dates: end: 20110614
  3. ZOLPIDEM [Concomitant]
     Route: 048
     Dates: start: 20110501, end: 20110614
  4. PERINDOPRIL ERBUMINE [Suspect]
     Indication: CORONARY ARTERY DISEASE
     Route: 048
     Dates: end: 20110614
  5. ACETAMINOPHEN [Concomitant]
     Route: 048
     Dates: start: 20110501, end: 20110614
  6. EFFEXOR [Concomitant]
  7. PLAVIX [Concomitant]
     Route: 048
     Dates: end: 20110614
  8. CLINDAMYCIN HCL [Concomitant]
     Route: 042
     Dates: start: 20110501, end: 20110614
  9. HUMALOG [Concomitant]
     Dosage: 1 DF= 6 UNITS IN MORNING, 5UNITS AT NOON 3UNITS IN EVENING
  10. TRAMADOL HCL [Concomitant]
     Route: 048
     Dates: start: 20110611, end: 20110614
  11. VALIUM [Concomitant]
     Route: 048
     Dates: start: 20110611, end: 20110614
  12. DURAGESIC-100 [Concomitant]
  13. NITROGLYCERIN [Concomitant]
     Dosage: ALSO 5 MG
  14. VITAMIN B1 + B6 [Concomitant]
  15. XYLOCAINE [Concomitant]
  16. ASPIRIN [Concomitant]
  17. LASIX [Suspect]
     Route: 048
     Dates: end: 20110614
  18. LANTUS [Concomitant]
     Dosage: 1 DF= 100 U/ML 20 UNITS
     Route: 058
  19. LYRICA [Suspect]
     Indication: DIABETIC NEUROPATHY
     Route: 048
     Dates: start: 20110501, end: 20110614
  20. TERCIAN [Concomitant]
     Route: 048
     Dates: start: 20110611, end: 20110614
  21. LEXOMIL [Concomitant]
  22. ENTONOX [Concomitant]

REACTIONS (14)
  - RENAL FAILURE ACUTE [None]
  - PAIN IN EXTREMITY [None]
  - DIABETES MELLITUS INADEQUATE CONTROL [None]
  - PSYCHOMOTOR RETARDATION [None]
  - INCONTINENCE [None]
  - PAIN [None]
  - FALL [None]
  - CONFUSIONAL STATE [None]
  - ARTERIOSCLEROSIS OBLITERANS [None]
  - RENAL FAILURE [None]
  - ABNORMAL BEHAVIOUR [None]
  - RESTLESSNESS [None]
  - ASPARTATE AMINOTRANSFERASE INCREASED [None]
  - CONDITION AGGRAVATED [None]
